FAERS Safety Report 5964588-1 (Version None)
Quarter: 2008Q4

REPORT INFORMATION
  Report Type: 
  Country: None (occurrence: None)
  Receive Date: 20081125
  Receipt Date: 20081117
  Transmission Date: 20090506
  Serious: Yes (Hospitalization)
  Sender: FDA-Public Use
  Company Number: US-JNJFOC-20081104328

PATIENT
  Sex: Male
  Weight: 113.4 kg

DRUGS (4)
  1. FENTANYL TRANSDERMAL SYSTEM [Suspect]
     Indication: PAIN IN EXTREMITY
     Route: 062
  2. FENTANYL TRANSDERMAL SYSTEM [Suspect]
     Indication: BACK PAIN
     Route: 062
  3. TRIAMTERENE AND HYDROCHLOROTHIAZIDE [Concomitant]
     Indication: BLOOD PRESSURE
     Dosage: 37.5/255 MG/TABLET/37.5/255MG DAILY/ORAL
     Route: 048
  4. TAGAMET [Concomitant]
     Indication: GASTRIC DISORDER
     Route: 048

REACTIONS (9)
  - DEPRESSION [None]
  - DIABETES MELLITUS [None]
  - DISLOCATION OF JOINT PROSTHESIS [None]
  - FALL [None]
  - GASTROOESOPHAGEAL REFLUX DISEASE [None]
  - NICOTINAMIDE DECREASED [None]
  - OSTEOARTHRITIS [None]
  - PAIN [None]
  - WRONG TECHNIQUE IN DRUG USAGE PROCESS [None]
